FAERS Safety Report 7577453-3 (Version None)
Quarter: 2011Q2

REPORT INFORMATION
  Report Type: 
  Country: None (occurrence: None)
  Receive Date: 20110628
  Receipt Date: 20081110
  Transmission Date: 20111010
  Serious: Yes (Death, Other)
  Sender: FDA-Public Use
  Company Number: US-BAYER-200837868NA

PATIENT
  Age: 70 Year
  Sex: Female
  Weight: 58.1 kg

DRUGS (26)
  1. TRASYLOL [Suspect]
     Indication: MITRAL VALVE REPAIR
     Dosage: 200 ML LOADING DOSE
     Route: 042
     Dates: start: 20061025, end: 20061025
  2. HYDROCHLOROTHIAZIDE [Concomitant]
     Route: 048
  3. KEFLEX [Concomitant]
     Route: 048
  4. ETOMIDATE [Concomitant]
     Dosage: 40 MG, UNK
     Route: 042
     Dates: start: 20061025
  5. PROTAMINE SULFATE [Concomitant]
     Dosage: 50 MG, UNK
     Route: 042
     Dates: start: 20061025, end: 20061025
  6. FENTANYL [Concomitant]
     Dosage: 20 ML, UNK
     Route: 042
     Dates: start: 20061025
  7. TRASYLOL [Suspect]
     Indication: CORONARY ARTERY BYPASS
     Dosage: 1 ML TEST DOSE
     Route: 042
     Dates: start: 20061025, end: 20061025
  8. PAXIL [Concomitant]
     Route: 048
  9. HEPARIN [Concomitant]
     Dosage: UNK
     Route: 042
     Dates: start: 20061025, end: 20061025
  10. VANCOMYCIN [Concomitant]
     Dosage: 1 MG, UNK
     Route: 042
     Dates: start: 20061025
  11. DOBUTAMINE HCL [Concomitant]
     Dosage: 25 MG, UNK
     Route: 042
     Dates: start: 20061025, end: 20061025
  12. MANNITOL [Concomitant]
     Dosage: UNK
     Route: 042
     Dates: start: 20061025
  13. MILRINONE [Concomitant]
     Dosage: 20 MG, UNK
     Route: 042
     Dates: start: 20061025, end: 20061025
  14. LISINOPRIL [Concomitant]
     Route: 048
  15. APROTININ [Concomitant]
     Dosage: 200
     Route: 042
     Dates: start: 20061025
  16. LIDOCAINE [Concomitant]
     Dosage: 100 MG, UNK
     Route: 042
     Dates: start: 20061025
  17. EPINEPHRINE [Concomitant]
     Dosage: UNK
     Route: 042
     Dates: start: 20061025
  18. MIDAZOLAM HCL [Concomitant]
     Dosage: 5 MG, UNK
     Route: 042
     Dates: start: 20061025, end: 20061025
  19. LEVOTHYROXINE SODIUM [Concomitant]
     Route: 048
  20. ASPIRIN [Concomitant]
     Route: 048
  21. LASIX [Concomitant]
     Dosage: 10 MG, UNK
     Route: 042
     Dates: start: 20061025
  22. TRASYLOL [Suspect]
     Dosage: 50 ML/HOUR INFUSION
     Route: 042
     Dates: start: 20061025, end: 20061025
  23. CEPHALEXIN [Concomitant]
     Route: 042
  24. SUCCINYLCHOLINE CHLORIDE [Concomitant]
     Dosage: UNK
     Route: 042
     Dates: start: 20061025, end: 20061025
  25. PANCURONIUM [Concomitant]
     Dosage: UNK
     Route: 042
     Dates: start: 20061025, end: 20061025
  26. PROPOFOL [Concomitant]
     Dosage: 10 MG, UNK
     Route: 042
     Dates: start: 20061025, end: 20061025

REACTIONS (11)
  - INJURY [None]
  - EMOTIONAL DISTRESS [None]
  - STRESS [None]
  - UNEVALUABLE EVENT [None]
  - FEAR [None]
  - DEATH [None]
  - RENAL FAILURE [None]
  - ANXIETY [None]
  - PAIN [None]
  - MULTI-ORGAN FAILURE [None]
  - ANHEDONIA [None]
